FAERS Safety Report 16668586 (Version 1)
Quarter: 2019Q3

REPORT INFORMATION
  Report Type: Spontaneous
  Country: US (occurrence: US)
  Receive Date: 20190804
  Receipt Date: 20190804
  Transmission Date: 20191004
  Serious: Yes (Hospitalization, Other)
  Sender: FDA-Public Use
  Company Number: None

PATIENT
  Age: 77 Year
  Sex: Female
  Weight: 59 kg

DRUGS (12)
  1. TUMS [Concomitant]
     Active Substance: CALCIUM CARBONATE
  2. HYALURONATE SODIUM [Concomitant]
     Active Substance: HYALURONATE SODIUM
  3. AMLODIPINE 10 MG [Concomitant]
     Active Substance: AMLODIPINE BESYLATE
     Dates: start: 20190626
  4. VITAMIN D3 [Concomitant]
     Active Substance: CHOLECALCIFEROL
  5. PROMACTA [Concomitant]
     Active Substance: ELTROMBOPAG OLAMINE
  6. PROMACTA [Suspect]
     Active Substance: ELTROMBOPAG OLAMINE
     Indication: IMMUNE THROMBOCYTOPENIC PURPURA
     Route: 048
     Dates: start: 20190528
  7. APIXABAN [Concomitant]
     Active Substance: APIXABAN
     Dates: start: 20190627
  8. MULTIVITAMIN (HAIR, SKIN, AND NAILS) [Concomitant]
  9. HEPARIN [Concomitant]
     Active Substance: HEPARIN SODIUM
     Dates: start: 20190625, end: 20190627
  10. CALCIUM [Concomitant]
     Active Substance: CALCIUM
  11. VITAMIN C [Concomitant]
     Active Substance: ASCORBIC ACID
  12. LISINOPRIL  5 MG [Concomitant]
     Active Substance: LISINOPRIL
     Dates: start: 20190626

REACTIONS (3)
  - Blood pressure increased [None]
  - Pulmonary embolism [None]
  - Pulmonary infarction [None]

NARRATIVE: CASE EVENT DATE: 20190625
